FAERS Safety Report 5956778-9 (Version None)
Quarter: 2008Q4

REPORT INFORMATION
  Report Type: 
  Country: None (occurrence: None)
  Receive Date: 20081118
  Receipt Date: 20081113
  Transmission Date: 20090506
  Serious: Yes (Other)
  Sender: FDA-Public Use
  Company Number: JP-ASTRAZENECA-2008AP08832

PATIENT
  Age: 40 Year
  Sex: Male

DRUGS (2)
  1. CRESTOR [Suspect]
     Indication: HYPERCHOLESTEROLAEMIA
     Route: 048
     Dates: end: 20081104
  2. PANALDINE [Suspect]
     Route: 048
     Dates: end: 20081104

REACTIONS (1)
  - HEPATIC FUNCTION ABNORMAL [None]
